FAERS Safety Report 19427896 (Version 1)
Quarter: 2021Q2

REPORT INFORMATION
  Report Type: Other
  Country: US (occurrence: US)
  Receive Date: 20210616
  Receipt Date: 20210616
  Transmission Date: 20210717
  Serious: No
  Sender: FDA-Public Use
  Company Number: US-ROCHE-2798753

PATIENT
  Age: 78 Year
  Sex: Male

DRUGS (4)
  1. DOLQUINE [Concomitant]
     Active Substance: HYDROXYCHLOROQUINE SULFATE
     Dates: start: 20200313
  2. AMIODARONE [Concomitant]
     Active Substance: AMIODARONE
  3. KALETRA [Concomitant]
     Active Substance: LOPINAVIR\RITONAVIR
     Dates: start: 20200313
  4. TOCILIZUMAB. [Suspect]
     Active Substance: TOCILIZUMAB
     Indication: COVID-19
     Route: 065
     Dates: start: 20200317

REACTIONS (2)
  - Off label use [Unknown]
  - No adverse event [Unknown]
